FAERS Safety Report 12992649 (Version 1)
Quarter: 2016Q4

REPORT INFORMATION
  Report Type: Report from Study
  Country: BR (occurrence: BR)
  Receive Date: 20161202
  Receipt Date: 20161202
  Transmission Date: 20170207
  Serious: Yes (Other)
  Sender: FDA-Public Use
  Company Number: BR-ROCHE-1852843

PATIENT
  Age: 22 Year
  Sex: Female

DRUGS (2)
  1. XOLAIR [Suspect]
     Active Substance: OMALIZUMAB
     Indication: ASTHMA
     Route: 058
     Dates: start: 20140828
  2. XOLAIR [Suspect]
     Active Substance: OMALIZUMAB
     Route: 058
     Dates: start: 201609

REACTIONS (7)
  - Dyspnoea [Recovering/Resolving]
  - Fatigue [Recovering/Resolving]
  - Noninfective bronchitis [Recovering/Resolving]
  - Rebound effect [Unknown]
  - Sinusitis [Recovered/Resolved]
  - Asthmatic crisis [Unknown]
  - Malaise [Unknown]

NARRATIVE: CASE EVENT DATE: 201607
